FAERS Safety Report 6538590-5 (Version None)
Quarter: 2010Q1

REPORT INFORMATION
  Report Type: 
  Country: None (occurrence: None)
  Receive Date: 20100113
  Receipt Date: 20100113
  Transmission Date: 20100710
  Serious: No
  Sender: FDA-Public Use
  Company Number: None

PATIENT
  Age: 69 Year
  Sex: Male
  Weight: 79.3795 kg

DRUGS (1)
  1. FINASTERIDE [Suspect]
     Indication: PROSTATIC DISORDER
     Dosage: 1 TABLET D
     Dates: start: 20091007, end: 20100102

REACTIONS (2)
  - DRUG INEFFECTIVE [None]
  - PRODUCT SUBSTITUTION ISSUE [None]
